FAERS Safety Report 6273482-0 (Version None)
Quarter: 2009Q3

REPORT INFORMATION
  Report Type: 
  Country: None (occurrence: None)
  Receive Date: 20090716
  Receipt Date: 20090706
  Transmission Date: 20100115
  Serious: Yes (Hospitalization)
  Sender: FDA-Public Use
  Company Number: 2009-200233-NL

PATIENT
  Age: 43 Year
  Sex: Female

DRUGS (1)
  1. DANAPAROID SODIUM [Suspect]
     Dosage: DF
     Dates: start: 20050101

REACTIONS (2)
  - TYPE IV HYPERSENSITIVITY REACTION [None]
  - URTICARIA [None]
